FAERS Safety Report 6693758-2 (Version None)
Quarter: 2010Q2

REPORT INFORMATION
  Report Type: 
  Country: None (occurrence: None)
  Receive Date: 20100423
  Receipt Date: 20091204
  Transmission Date: 20101027
  Serious: No
  Sender: FDA-Public Use
  Company Number: A0833631A

PATIENT
  Sex: Female

DRUGS (8)
  1. DEXEDRINE [Suspect]
     Indication: DEPRESSION
     Dosage: 15MG FIVE TIMES PER DAY
     Route: 048
     Dates: start: 19990101
  2. KLONOPIN [Concomitant]
  3. DALMANE [Concomitant]
  4. FLUTICASONE PROPIONATE [Concomitant]
  5. IRON [Concomitant]
     Route: 048
  6. ALLERGY INJECTION [Concomitant]
  7. DARVOCET [Concomitant]
  8. SYNTHROID [Concomitant]

REACTIONS (1)
  - RASH ERYTHEMATOUS [None]
